FAERS Safety Report 9756553 (Version 1)
Quarter: 2013Q4

REPORT INFORMATION
  Report Type: Spontaneous
  Country: US (occurrence: US)
  Receive Date: 20131213
  Receipt Date: 20131213
  Transmission Date: 20140711
  Serious: No
  Sender: FDA-Public Use
  Company Number: US-GLAXOSMITHKLINE-A1045565A

PATIENT
  Age: 61 Year
  Sex: Male

DRUGS (2)
  1. NICODERM CQ CLEAR 7MG [Suspect]
     Indication: EX-TOBACCO USER
     Dates: start: 20130924, end: 20131014
  2. NICODERM CQ CLEAR 14MG [Suspect]
     Indication: EX-TOBACCO USER
     Dates: start: 20130924, end: 20131014

REACTIONS (5)
  - Sinus disorder [Not Recovered/Not Resolved]
  - Nausea [Not Recovered/Not Resolved]
  - Upper-airway cough syndrome [Not Recovered/Not Resolved]
  - Drug administration error [Not Recovered/Not Resolved]
  - Drug ineffective [Unknown]
